FAERS Safety Report 4496903-2 (Version None)
Quarter: 2004Q4

REPORT INFORMATION
  Report Type: 
  Country: None (occurrence: None)
  Receive Date: 20040928
  Receipt Date: 20040809
  Transmission Date: 20050328
  Serious: No
  Sender: FDA-Public Use
  Company Number: 04P-163-0257342-00

PATIENT
  Age: 80 Year
  Sex: Female
  Weight: 63.9572 kg

DRUGS (11)
  1. HUMIRA [Suspect]
     Indication: RHEUMATOID ARTHRITIS
     Dosage: 40 MG, 1 IN 2 WK, SUBCUTANEOUS
     Route: 058
     Dates: start: 20040223, end: 20040329
  2. HUMIRA [Suspect]
     Indication: RHEUMATOID ARTHRITIS
     Dosage: 40 MG, 1 IN 2 WK, SUBCUTANEOUS
     Route: 058
     Dates: start: 20040401
  3. METHOTREXATE [Concomitant]
  4. RISEDRONATE SODIUM [Concomitant]
  5. HYDROXYCHLOROQUINE PHOSPHATE [Concomitant]
  6. CELECOXIB [Concomitant]
  7. FOLIC ACID [Concomitant]
  8. LISINOPRIL [Concomitant]
  9. LEVOTHYROXINE SODIUM [Concomitant]
  10. TRAVASTON [Concomitant]
  11. ESOMEPRAZOLE [Concomitant]

REACTIONS (5)
  - DYSPNOEA [None]
  - INJECTION SITE NODULE [None]
  - INJECTION SITE WARMTH [None]
  - NASOPHARYNGITIS [None]
  - VITAMIN D DECREASED [None]
